FAERS Safety Report 22291237 (Version 1)
Quarter: 2023Q2

REPORT INFORMATION
  Report Type: Spontaneous
  Country: IT (occurrence: IT)
  Receive Date: 20230506
  Receipt Date: 20230506
  Transmission Date: 20230721
  Serious: Yes (Other)
  Sender: FDA-Public Use
  Company Number: IT-002147023-NVSC2023IT091650

PATIENT
  Age: 76 Year
  Sex: Female

DRUGS (3)
  1. BEOVU [Suspect]
     Active Substance: BROLUCIZUMAB-DBLL
     Indication: Product used for unknown indication
     Dosage: UNK (RIGHT EYE)
     Route: 031
     Dates: start: 20230207
  2. BEOVU [Suspect]
     Active Substance: BROLUCIZUMAB-DBLL
     Dosage: UNK (RIGHT EYE)
     Route: 031
     Dates: start: 20230314
  3. CORTISONE [Concomitant]
     Active Substance: CORTISONE
     Indication: Asthma
     Dosage: 5 MG, QD
     Route: 065

REACTIONS (5)
  - Retinal artery occlusion [Not Recovered/Not Resolved]
  - Posterior capsule opacification [Unknown]
  - Conjunctivochalasis [Unknown]
  - Pseudophakia [Unknown]
  - Visual impairment [Not Recovered/Not Resolved]

NARRATIVE: CASE EVENT DATE: 20230403
